FAERS Safety Report 5079594-1 (Version None)
Quarter: 2006Q3

REPORT INFORMATION
  Report Type: 
  Country: None (occurrence: None)
  Receive Date: 20060814
  Receipt Date: 20041216
  Transmission Date: 20061208
  Serious: Yes (Hospitalization)
  Sender: FDA-Public Use
  Company Number: IL-NOVOPROD-241145

PATIENT
  Age: 6 Year
  Sex: Female
  Weight: 16 kg

DRUGS (3)
  1. MOXYPEN [Concomitant]
     Dates: start: 20041203, end: 20041206
  2. MEASLES, MUMPS AND RUBELLA VACCINE [Concomitant]
     Dates: start: 20041202, end: 20041202
  3. NORDITROPIN [Suspect]
     Indication: FOETAL GROWTH RETARDATION
     Route: 058
     Dates: start: 20041005, end: 20041215

REACTIONS (6)
  - DIPLOPIA [None]
  - HEADACHE [None]
  - PAPILLOEDEMA [None]
  - UPPER RESPIRATORY TRACT INFECTION [None]
  - VACCINATION COMPLICATION [None]
  - VITH NERVE INJURY [None]
